FAERS Safety Report 5034647-9 (Version None)
Quarter: 2006Q2

REPORT INFORMATION
  Report Type: 
  Country: None (occurrence: None)
  Receive Date: 20060621
  Receipt Date: 20060614
  Transmission Date: 20061013
  Serious: Yes (Death)
  Sender: FDA-Public Use
  Company Number: 224432

PATIENT
  Age: 43 Year
  Sex: Male
  Weight: 74 kg

DRUGS (7)
  1. MABTHERA                             (RITUXIMAB) [Suspect]
     Indication: BURKITT'S LYMPHOMA
     Dosage: 650 MG, INTRAVENOUS
     Route: 042
     Dates: start: 20060323
  2. MABTHERA               (RITUXIMAB) [Suspect]
  3. CYCLOPHOSPHAMIDE [Suspect]
     Indication: BURKITT'S LYMPHOMA
     Dates: start: 20060316, end: 20060320
  4. METHOTREXATE [Suspect]
     Indication: BURKITT'S LYMPHOMA
     Dates: start: 20060326
  5. VINCRISTINE [Suspect]
     Indication: BURKITT'S LYMPHOMA
     Dates: start: 20060326, end: 20060327
  6. CYTARABINE [Suspect]
     Indication: BURKITT'S LYMPHOMA
     Dates: start: 20060323, end: 20060327
  7. ISOPHOSPHAMIDE                         (IFOSFAMIDE) [Suspect]
     Indication: BURKITT'S LYMPHOMA
     Dates: start: 20060323, end: 20060327

REACTIONS (10)
  - COUGH [None]
  - DYSPNOEA [None]
  - GENERAL PHYSICAL HEALTH DETERIORATION [None]
  - HYPOTENSION [None]
  - PSEUDOMONAS INFECTION [None]
  - PYREXIA [None]
  - SENSE OF OPPRESSION [None]
  - SEPSIS [None]
  - TACHYCARDIA [None]
  - TACHYPNOEA [None]
